FAERS Safety Report 9759862 (Version 1)
Quarter: 2013Q4

REPORT INFORMATION
  Report Type: Spontaneous
  Country: GB (occurrence: None)
  Receive Date: 20131212
  Receipt Date: 20131212
  Transmission Date: 20140711
  Serious: Yes (Other)
  Sender: FDA-Public Use
  Company Number: 2059241

PATIENT
  Sex: 0

DRUGS (2)
  1. DOCETAXEL [Suspect]
     Indication: PROSTATE CANCER
     Route: 042
     Dates: start: 20131114, end: 20131114
  2. DEXAMETHASONE [Concomitant]

REACTIONS (8)
  - Vision blurred [None]
  - Asthenopia [None]
  - Head discomfort [None]
  - Blood pressure decreased [None]
  - Unresponsive to stimuli [None]
  - Staring [None]
  - Drooling [None]
  - Anaphylactic reaction [None]
